FAERS Safety Report 10784483 (Version 1)
Quarter: 2015Q1

REPORT INFORMATION
  Report Type: Spontaneous
  Country: US (occurrence: None)
  Receive Date: 20150209
  Receipt Date: 20150209
  Transmission Date: 20150721
  Serious: No
  Sender: FDA-Public Use
  Company Number: None

PATIENT

DRUGS (1)
  1. BENDAMUSTINE (TREANDA) [Suspect]
     Active Substance: BENDAMUSTINE

REACTIONS (2)
  - Product formulation issue [None]
  - Underdose [None]
